FAERS Safety Report 5516540-8 (Version None)
Quarter: 2007Q4

REPORT INFORMATION
  Report Type: 
  Country: None (occurrence: None)
  Receive Date: 20071114
  Receipt Date: 20070315
  Transmission Date: 20080405
  Serious: No
  Sender: FDA-Public Use
  Company Number: A0643189A

PATIENT
  Age: 60 Year
  Sex: Female

DRUGS (3)
  1. COMMIT [Suspect]
     Dates: start: 20070312, end: 20070312
  2. NICODERM CQ [Suspect]
  3. NICODERM CQ [Suspect]

REACTIONS (4)
  - DYSPEPSIA [None]
  - HEART RATE INCREASED [None]
  - PALPITATIONS [None]
  - PARAESTHESIA ORAL [None]
